FAERS Safety Report 7829849-X (Version None)
Quarter: 2011Q4

REPORT INFORMATION
  Report Type: 
  Country: None (occurrence: None)
  Receive Date: 20111018
  Receipt Date: 20111010
  Transmission Date: 20120403
  Serious: Yes (Death)
  Sender: FDA-Public Use
  Company Number: NO-ACCORD-010959

PATIENT
  Age: 49 Year
  Sex: Male

DRUGS (6)
  1. VINCRISTINE [Suspect]
     Indication: HODGKIN'S DISEASE
     Dosage: 1.40-MG/M2
     Route: 042
  2. BLEOMYCIN SULFATE [Suspect]
     Indication: HODGKIN'S DISEASE
     Dosage: 10000.00-LU
     Route: 042
  3. PREDNISOLONE [Suspect]
     Indication: HODGKIN'S DISEASE
     Dosage: 100.00-MG/M2
     Route: 048
  4. ETOPOSIDE [Suspect]
     Indication: HODGKIN'S DISEASE
     Dosage: 200.00-MG/M2
     Route: 022
  5. DOXORUBICIN HCL [Suspect]
     Indication: HODGKIN'S DISEASE
     Dosage: 35.00-MG/M2
     Route: 042
  6. CYCLOPHOSPHAMIDE [Suspect]
     Indication: HODGKIN'S DISEASE
     Dosage: 1250.00-MG/M2
     Route: 042

REACTIONS (5)
  - BONE MARROW FAILURE [None]
  - PNEUMOCYSTIS JIROVECI PNEUMONIA [None]
  - SEPTIC SHOCK [None]
  - THERAPEUTIC RESPONSE DECREASED [None]
  - OFF LABEL USE [None]
